FAERS Safety Report 4847045-5 (Version None)
Quarter: 2005Q4

REPORT INFORMATION
  Report Type: 
  Country: None (occurrence: None)
  Receive Date: 20051205
  Receipt Date: 20051123
  Transmission Date: 20060501
  Serious: Yes (Disabling, Other)
  Sender: FDA-Public Use
  Company Number: 2005_000043

PATIENT
  Age: 52 Year
  Sex: Female

DRUGS (1)
  1. DEPOCYT [Suspect]
     Indication: NON-HODGKIN'S LYMPHOMA
     Dosage: 50 MG; 1X; INTH
     Route: 037
     Dates: start: 20050415, end: 20050415

REACTIONS (5)
  - CEREBRAL DISORDER [None]
  - DEMYELINATION [None]
  - MYELOPATHY [None]
  - PERIPHERAL MOTOR NEUROPATHY [None]
  - PYRAMIDAL TRACT SYNDROME [None]
